FAERS Safety Report 6527583-X (Version None)
Quarter: 2010Q1

REPORT INFORMATION
  Report Type: 
  Country: None (occurrence: None)
  Receive Date: 20100105
  Receipt Date: 20091225
  Transmission Date: 20100710
  Serious: Yes (Hospitalization, Other)
  Sender: FDA-Public Use
  Company Number: PHHY2009JP36931

PATIENT
  Sex: Female
  Weight: 34 kg

DRUGS (5)
  1. ZOMETA [Suspect]
     Indication: BONE LESION
     Dosage: 4 MG EVERY 4 WEEKS
     Route: 042
     Dates: start: 20081224, end: 20090722
  2. FOSAMAX [Suspect]
     Indication: BONE LESION
     Dosage: 5 MG/DAY
     Route: 048
     Dates: start: 20071127, end: 20081021
  3. MELPHALAN [Concomitant]
     Indication: MULTIPLE MYELOMA
     Dosage: 8 MG, UNK
     Route: 048
     Dates: start: 20071127, end: 20080801
  4. PREDONINE [Concomitant]
     Indication: MULTIPLE MYELOMA
     Dosage: 40 MG, UNK
     Route: 048
     Dates: start: 20071127, end: 20080801
  5. GASTER D [Concomitant]
     Indication: PROPHYLAXIS
     Dosage: 20 MG, UNK
     Route: 048
     Dates: start: 20071127, end: 20080923

REACTIONS (9)
  - BONE DISORDER [None]
  - CEREBRAL INFARCTION [None]
  - GINGIVAL SWELLING [None]
  - NEPHRITIS [None]
  - OSTEONECROSIS [None]
  - PURULENT DISCHARGE [None]
  - PYREXIA [None]
  - RENAL IMPAIRMENT [None]
  - SWELLING [None]
